FAERS Safety Report 8423997-1 (Version None)
Quarter: 2012Q2

REPORT INFORMATION
  Report Type: 
  Country: None (occurrence: None)
  Receive Date: 20120608
  Receipt Date: 20110523
  Transmission Date: 20120825
  Serious: No
  Sender: FDA-Public Use
  Company Number: US-ASTRAZENECA-2011SE21887

PATIENT
  Sex: Female

DRUGS (1)
  1. PULMICORT FLEXHALER [Suspect]
     Dosage: ONE PUFF TWICE DAILY
     Route: 055

REACTIONS (2)
  - DRUG DOSE OMISSION [None]
  - PULMONARY FUNCTION TEST DECREASED [None]
